FAERS Safety Report 8581181-5 (Version None)
Quarter: 2012Q3

REPORT INFORMATION
  Report Type: 
  Country: None (occurrence: None)
  Receive Date: 20120809
  Receipt Date: 20120731
  Transmission Date: 20120928
  Serious: Yes (Hospitalization)
  Sender: FDA-Public Use
  Company Number: US-BAYER-2012-078672

PATIENT
  Age: 48 Year
  Sex: Female
  Weight: 53.515 kg

DRUGS (6)
  1. VICODIN [Concomitant]
     Dosage: 5-500 MG
     Route: 048
     Dates: start: 20101201
  2. DROSPIRENONE AND ETHINYL ESTRADIOL [Suspect]
  3. CYCLOBENZAPRINE [Concomitant]
     Dosage: 10 MG, UNK
     Route: 048
     Dates: start: 20101201
  4. YAZ [Suspect]
     Indication: UTERINE LEIOMYOMA
  5. YAZ [Suspect]
     Indication: MENORRHAGIA
  6. PREDNISONE TAB [Concomitant]
     Dosage: 10 MG, UNK
     Route: 048
     Dates: start: 20101201

REACTIONS (1)
  - DEEP VEIN THROMBOSIS [None]
